FAERS Safety Report 24759851 (Version 1)
Quarter: 2024Q4

REPORT INFORMATION
  Report Type: Spontaneous
  Country: JP (occurrence: JP)
  Receive Date: 20241220
  Receipt Date: 20241220
  Transmission Date: 20250115
  Serious: Yes (Other)
  Sender: ROCHE
  Company Number: JP-CHUGAI-2024043579

PATIENT
  Age: 6 Year
  Sex: Male

DRUGS (1)
  1. HEMLIBRA [Suspect]
     Active Substance: EMICIZUMAB-KXWH
     Indication: Factor VIII deficiency
     Dosage: 0.3 MILLILITRE PER KILOGRAM, ONCE/2WEEKS
     Route: 050
     Dates: end: 20241114

REACTIONS (1)
  - Surgery [Unknown]
